FAERS Safety Report 6550549-0 (Version None)
Quarter: 2010Q1

REPORT INFORMATION
  Report Type: 
  Country: None (occurrence: None)
  Receive Date: 20100122
  Receipt Date: 20100122
  Transmission Date: 20100710
  Serious: Yes (Other)
  Sender: FDA-Public Use
  Company Number: None

PATIENT
  Age: 72 Year
  Sex: Female
  Weight: 58.9676 kg

DRUGS (2)
  1. TYLENOL (CAPLET) [Suspect]
     Indication: PAIN
     Dosage: 2 TABLETS 4 HRS PO
     Route: 048
     Dates: start: 20091201, end: 20100115
  2. TYLENOL (CAPLET) [Suspect]
     Indication: ARTHRITIS

REACTIONS (6)
  - ABDOMINAL PAIN UPPER [None]
  - ASTHENIA [None]
  - DIARRHOEA [None]
  - DIZZINESS [None]
  - MALAISE [None]
  - PRODUCT QUALITY ISSUE [None]
